FAERS Safety Report 19240744 (Version 1)
Quarter: 2021Q2

REPORT INFORMATION
  Report Type: Spontaneous
  Country: US (occurrence: US)
  Receive Date: 20210511
  Receipt Date: 20210511
  Transmission Date: 20210717
  Serious: No
  Sender: FDA-Public Use
  Company Number: US-CELGENEUS-USA-20210501429

PATIENT

DRUGS (3)
  1. AZACITIDINE. [Suspect]
     Active Substance: AZACITIDINE
     Indication: OFF LABEL USE
     Dosage: 30 MILLIGRAM/SQ. METER
     Route: 055
  2. AZACITIDINE. [Suspect]
     Active Substance: AZACITIDINE
     Indication: NON-SMALL CELL LUNG CANCER
     Dosage: 15 MILLIGRAM/SQ. METER
     Route: 055
  3. AZACITIDINE. [Suspect]
     Active Substance: AZACITIDINE
     Dosage: 45 MILLIGRAM/SQ. METER
     Route: 055

REACTIONS (1)
  - Lung diffusion test decreased [Recovered/Resolved]
